FAERS Safety Report 6977569-6 (Version None)
Quarter: 2010Q3

REPORT INFORMATION
  Report Type: 
  Country: None (occurrence: None)
  Receive Date: 20100912
  Receipt Date: 20100906
  Transmission Date: 20110219
  Serious: Yes (Hospitalization)
  Sender: FDA-Public Use
  Company Number: ES-BRISTOL-MYERS SQUIBB COMPANY-14908859

PATIENT
  Age: 76 Year
  Sex: Male
  Weight: 90 kg

DRUGS (3)
  1. CETUXIMAB [Suspect]
     Indication: NON-SMALL CELL LUNG CANCER
     Dosage: RECENT DOSE: 09DEC09;
     Route: 042
     Dates: start: 20091013, end: 20091209
  2. CISPLATIN [Suspect]
     Indication: NON-SMALL CELL LUNG CANCER
     Dosage: RECENT DOSE: 03DEC09; DAY 1 OF 21 DAY CYCLE;
     Route: 042
     Dates: start: 20091013, end: 20091203
  3. GEMCITABINE [Suspect]
     Indication: NON-SMALL CELL LUNG CANCER
     Dosage: RECENT DOSE: 09DEC09;  ON DAY 1,8 OF 21 DAYS CYCLE
     Route: 042
     Dates: start: 20091013, end: 20091203

REACTIONS (1)
  - EPISTAXIS [None]
